FAERS Safety Report 21640477 (Version 1)
Quarter: 2022Q4

REPORT INFORMATION
  Report Type: Report from Study
  Country: US (occurrence: US)
  Receive Date: 20221124
  Receipt Date: 20221124
  Transmission Date: 20230113
  Serious: Yes (Other)
  Sender: FDA-Public Use
  Company Number: US-ACADIA PHARMACEUTICALS INC.-ACA-2022-PIM-004032

PATIENT
  Age: 85 Year
  Sex: Female

DRUGS (5)
  1. NUPLAZID [Suspect]
     Active Substance: PIMAVANSERIN TARTRATE
     Indication: Parkinson^s disease
     Dosage: 34 MILLIGRAM, QD
     Route: 048
     Dates: start: 20221026
  2. SINEMET [Concomitant]
     Active Substance: CARBIDOPA\LEVODOPA
  3. XALATAN [Concomitant]
     Active Substance: LATANOPROST
  4. AMLODIPINE [Concomitant]
     Active Substance: AMLODIPINE BESYLATE
  5. VITAMINS [Concomitant]
     Active Substance: VITAMINS

REACTIONS (4)
  - Cerebrovascular accident [Unknown]
  - Pruritus [Unknown]
  - Aphasia [Unknown]
  - Grunting [Unknown]

NARRATIVE: CASE EVENT DATE: 20221026
